FAERS Safety Report 5248524-1 (Version None)
Quarter: 2007Q1

REPORT INFORMATION
  Report Type: 
  Country: None (occurrence: None)
  Receive Date: 20070227
  Receipt Date: 20070215
  Transmission Date: 20070707
  Serious: Yes (Hospitalization)
  Sender: FDA-Public Use
  Company Number: JP-PFIZER INC-2007010658

PATIENT
  Sex: Male

DRUGS (11)
  1. GABAPEN [Suspect]
     Indication: CONVULSION
     Dosage: DAILY DOSE:1600MG
     Route: 048
     Dates: start: 20070123, end: 20070208
  2. ALEVIATIN [Concomitant]
     Indication: EPILEPSY
     Dosage: DAILY DOSE:2.7MG-FREQ:DAILY
     Route: 048
     Dates: start: 20070120, end: 20070128
  3. SELENICA-R [Concomitant]
     Indication: EPILEPSY
     Dosage: DAILY DOSE:1200MG-FREQ:DAILY
     Route: 048
     Dates: start: 20070110, end: 20070128
  4. TEGRETOL [Concomitant]
     Indication: EPILEPSY
     Dosage: DAILY DOSE:200MG
     Route: 048
     Dates: start: 20070122, end: 20070204
  5. CERCINE [Concomitant]
     Indication: EPILEPSY
     Dosage: DAILY DOSE:5MG-FREQ:SINGLE DOSE
     Route: 042
     Dates: start: 20070124, end: 20070124
  6. MAGNESIUM OXIDE [Concomitant]
     Route: 048
  7. MUCOSTA [Concomitant]
     Route: 048
  8. FAMOTIDINE [Concomitant]
     Route: 048
  9. URSO [Concomitant]
     Route: 048
  10. PHENOBARBITAL TAB [Concomitant]
     Route: 030
  11. PHENOBARBITAL TAB [Concomitant]
     Route: 048

REACTIONS (1)
  - DEPRESSED LEVEL OF CONSCIOUSNESS [None]
